FAERS Safety Report 21460525 (Version 2)
Quarter: 2022Q4

REPORT INFORMATION
  Report Type: Report from Study
  Country: US (occurrence: US)
  Receive Date: 20221015
  Receipt Date: 20221117
  Transmission Date: 20230113
  Serious: No
  Sender: FDA-Public Use
  Company Number: US-ABBVIE-4144264

PATIENT
  Sex: Female

DRUGS (2)
  1. RINVOQ [Suspect]
     Active Substance: UPADACITINIB
     Indication: Rheumatoid arthritis
     Dosage: FORM STRENGTH: 15?LAST ADMIN DATE: 2022
     Route: 048
     Dates: start: 20220908
  2. RINVOQ [Suspect]
     Active Substance: UPADACITINIB
     Indication: Rheumatoid arthritis
     Dosage: FORM STRENGTH: 15
     Route: 048
     Dates: start: 2022

REACTIONS (15)
  - Palpitations [Unknown]
  - Inflammation [Unknown]
  - Loss of personal independence in daily activities [Unknown]
  - Dizziness [Unknown]
  - Grip strength decreased [Recovered/Resolved]
  - Pain [Recovered/Resolved]
  - Insomnia [Unknown]
  - Swelling [Not Recovered/Not Resolved]
  - Grip strength decreased [Unknown]
  - Dizziness postural [Unknown]
  - Musculoskeletal stiffness [Unknown]
  - Pain [Unknown]
  - Dyspnoea [Unknown]
  - Mobility decreased [Unknown]
  - Weight increased [Unknown]

NARRATIVE: CASE EVENT DATE: 20220101
